FAERS Safety Report 8761325 (Version 5)
Quarter: 2013Q3

REPORT INFORMATION
  Report Type: Spontaneous
  Country: US (occurrence: US)
  Receive Date: 20120830
  Receipt Date: 20130918
  Transmission Date: 20140515
  Serious: Yes (Hospitalization, Other)
  Sender: FDA-Public Use
  Company Number: US-US-EMD SERONO, INC.-7157158

PATIENT
  Age: 38 Year
  Sex: Female

DRUGS (3)
  1. REBIF [Suspect]
     Indication: MULTIPLE SCLEROSIS
     Route: 058
     Dates: start: 20080907, end: 20120312
  2. REBIF [Suspect]
     Route: 058
     Dates: start: 20120918
  3. REBIF [Suspect]

REACTIONS (4)
  - Breast cancer [Recovering/Resolving]
  - Post procedural infection [Unknown]
  - Multiple sclerosis relapse [Unknown]
  - Injection site erythema [Not Recovered/Not Resolved]
